FAERS Safety Report 5058171-2 (Version None)
Quarter: 2006Q3

REPORT INFORMATION
  Report Type: 
  Country: None (occurrence: None)
  Receive Date: 20060721
  Receipt Date: 20060711
  Transmission Date: 20061208
  Serious: Yes (Hospitalization)
  Sender: FDA-Public Use
  Company Number: FR-JNJFOC-20060703274

PATIENT
  Age: 12 Year
  Sex: Male

DRUGS (2)
  1. ZALDIAR [Suspect]
     Indication: POST-TRAUMATIC PAIN
     Route: 048
  2. BI-PROFENID [Suspect]
     Indication: POST-TRAUMATIC PAIN
     Route: 048

REACTIONS (3)
  - DEHYDRATION [None]
  - RENAL FAILURE ACUTE [None]
  - VOMITING [None]
